FAERS Safety Report 10868840 (Version 1)
Quarter: 2015Q1

REPORT INFORMATION
  Report Type: Spontaneous
  Country: US (occurrence: US)
  Receive Date: 20150225
  Receipt Date: 20150225
  Transmission Date: 20150721
  Serious: Yes (Death, Other)
  Sender: FDA-Public Use
  Company Number: US-ASTRAZENECA-2014SE96977

PATIENT
  Age: 22408 Day
  Sex: Male
  Weight: 72.6 kg

DRUGS (25)
  1. LEVEMIR [Concomitant]
     Active Substance: INSULIN DETEMIR
     Dosage: 16 UNITS DAILY
     Dates: start: 20061025
  2. PROPRANOLOL [Concomitant]
     Active Substance: PROPRANOLOL\PROPRANOLOL HYDROCHLORIDE
     Dates: start: 20061120
  3. REMERON [Concomitant]
     Active Substance: MIRTAZAPINE
     Dates: start: 20071129
  4. BYETTA [Suspect]
     Active Substance: EXENATIDE
     Indication: PRODUCT USED FOR UNKNOWN INDICATION
     Route: 065
     Dates: start: 20061026
  5. ARANESP [Concomitant]
     Active Substance: DARBEPOETIN ALFA
     Dates: start: 200804
  6. COMPAZINE [Concomitant]
     Active Substance: PROCHLORPERAZINE MALEATE
     Dates: start: 20080114
  7. POLY IRON [Concomitant]
     Active Substance: DIETARY SUPPLEMENT
  8. BYETTA [Suspect]
     Active Substance: EXENATIDE
     Indication: PRODUCT USED FOR UNKNOWN INDICATION
     Dosage: UNK
     Route: 065
     Dates: start: 20061025, end: 20080407
  9. AVELOX [Concomitant]
     Active Substance: MOXIFLOXACIN HYDROCHLORIDE
     Dates: start: 20071029
  10. WELLBUTRIN [Concomitant]
     Active Substance: BUPROPION HYDROCHLORIDE
     Dates: start: 20080207
  11. ATIVAN [Concomitant]
     Active Substance: LORAZEPAM
     Dates: start: 20071029
  12. METFORMIN [Concomitant]
     Active Substance: METFORMIN HYDROCHLORIDE
     Dates: start: 20061024
  13. PROTONIX [Concomitant]
     Active Substance: PANTOPRAZOLE SODIUM
     Dates: start: 20080414
  14. LAMISIL [Concomitant]
     Active Substance: TERBINAFINE HYDROCHLORIDE
     Dates: start: 20071029
  15. PRILOSEC [Concomitant]
     Active Substance: OMEPRAZOLE MAGNESIUM
     Dates: start: 20080207
  16. COUMADIN [Concomitant]
     Active Substance: WARFARIN SODIUM
     Dates: start: 20080212
  17. 5-FU [Concomitant]
     Active Substance: FLUOROURACIL
     Dates: start: 200708
  18. TARCEVA [Concomitant]
     Active Substance: ERLOTINIB HYDROCHLORIDE
     Dates: start: 20070828
  19. NEUPOGEN [Concomitant]
     Active Substance: FILGRASTIM
     Dates: start: 200804
  20. KEFLEX [Concomitant]
     Active Substance: CEPHALEXIN
     Dates: start: 20080902
  21. WARFARIN [Concomitant]
     Active Substance: WARFARIN
     Dates: start: 20080808
  22. ZOFRAN [Concomitant]
     Active Substance: ONDANSETRON HYDROCHLORIDE
     Dates: start: 20080114
  23. GEMZAR [Concomitant]
     Active Substance: GEMCITABINE HYDROCHLORIDE
     Dosage: 1800 MG EVERY 2 WEEKS DAY ONE AND DAY THREE
     Dates: start: 200708
  24. LEUCOVORIN [Concomitant]
     Active Substance: LEUCOVORIN
     Dosage: 100 MG EVERY 2 WEEKS DAY ONE AND DAY THREE
     Dates: start: 200708
  25. HYZAAR [Concomitant]
     Active Substance: HYDROCHLOROTHIAZIDE\LOSARTAN POTASSIUM
     Dosage: 100/25 MG DAILY
     Dates: start: 20070804

REACTIONS (2)
  - Pancreatic carcinoma metastatic [Fatal]
  - Metastases to biliary tract [Unknown]

NARRATIVE: CASE EVENT DATE: 20070807
